FAERS Safety Report 4511395-2 (Version None)
Quarter: 2004Q4

REPORT INFORMATION
  Report Type: 
  Country: None (occurrence: None)
  Receive Date: 20041129
  Receipt Date: 20040120
  Transmission Date: 20050328
  Serious: Yes (Life-Threatening)
  Sender: FDA-Public Use
  Company Number: US-BRISTOL-MYERS SQUIBB COMPANY-12481511

PATIENT
  Age: 59 Year
  Sex: Female
  Weight: 74 kg

DRUGS (17)
  1. ABILIFY [Suspect]
     Indication: DEPRESSION
     Route: 048
     Dates: start: 20031020, end: 20031111
  2. ABILIFY [Suspect]
     Indication: MERYCISM
     Route: 048
     Dates: start: 20031020, end: 20031111
  3. DEPAKOTE [Concomitant]
  4. ADVAIR [Concomitant]
     Indication: ASTHMA
  5. FLOVENT [Concomitant]
     Indication: ASTHMA
  6. PREDNISONE [Concomitant]
     Indication: ASTHMA
  7. SINGULAIR [Concomitant]
     Indication: ASTHMA
  8. GUAIFENESIN [Concomitant]
  9. CLARINEX [Concomitant]
  10. ESTRADIOL [Concomitant]
  11. MEDROXYPROGESTERONE [Concomitant]
  12. LEVOXYL [Concomitant]
  13. NEURONTIN [Concomitant]
     Indication: PAIN
  14. SOMA [Concomitant]
  15. FUROSEMIDE [Concomitant]
  16. POTASSIUM CHLORIDE [Concomitant]
  17. NAPROXEN [Concomitant]

REACTIONS (2)
  - ATRIAL FIBRILLATION [None]
  - VISION BLURRED [None]
